FAERS Safety Report 11371897 (Version 3)
Quarter: 2016Q2

REPORT INFORMATION
  Report Type: Spontaneous
  Country: PT (occurrence: PT)
  Receive Date: 20150812
  Receipt Date: 20160427
  Transmission Date: 20160815
  Serious: Yes (Hospitalization, Other)
  Sender: FDA-Public Use
  Company Number: PHHY2015PT095575

PATIENT
  Age: 61 Year
  Sex: Female

DRUGS (11)
  1. PREDNISONE. [Suspect]
     Active Substance: PREDNISONE
     Indication: IMMUNOSUPPRESSION
     Dosage: 7.5 MG, QD
     Route: 065
  2. MYCOPHENOLATE MOFETIL. [Suspect]
     Active Substance: MYCOPHENOLATE MOFETIL
     Indication: IMMUNOSUPPRESSION
     Dosage: 250 MG, BID
     Route: 065
  3. OMEPRAZOLE. [Suspect]
     Active Substance: OMEPRAZOLE
     Indication: IMMUNOSUPPRESSION
     Dosage: 20 MG, QD
     Route: 065
  4. VALGANCICLOVIR. [Suspect]
     Active Substance: VALGANCICLOVIR
     Indication: IMMUNOSUPPRESSION
     Dosage: 50 MG, QD
     Route: 065
  5. BASILIXIMAB [Suspect]
     Active Substance: BASILIXIMAB
     Indication: IMMUNOSUPPRESSION
     Route: 065
  6. COTRIMOXAZOL [Suspect]
     Active Substance: SULFAMETHOXAZOLE\TRIMETHOPRIM
     Indication: IMMUNOSUPPRESSION
     Dosage: 960 MG, QOD
     Route: 065
  7. DARBEPOETIN ALFA [Suspect]
     Active Substance: DARBEPOETIN ALFA
     Indication: IMMUNOSUPPRESSION
     Dosage: 20 MG, QW2
     Route: 065
  8. TACROLIMUS SANDOZ [Suspect]
     Active Substance: TACROLIMUS
     Indication: IMMUNOSUPPRESSION
     Dosage: 1 MG, BID
     Route: 065
  9. CARVEDILOL. [Suspect]
     Active Substance: CARVEDILOL
     Indication: IMMUNOSUPPRESSION
     Dosage: 25 MG, QD
     Route: 065
  10. ALPRAZOLAM. [Suspect]
     Active Substance: ALPRAZOLAM
     Indication: IMMUNOSUPPRESSION
     Dosage: 0.25 MG, QD
     Route: 065
  11. FUROSEMIDE. [Suspect]
     Active Substance: FUROSEMIDE
     Indication: IMMUNOSUPPRESSION
     Dosage: 40 MG, QD
     Route: 065

REACTIONS (9)
  - Pneumocystis jirovecii pneumonia [Unknown]
  - Decreased appetite [Unknown]
  - Aspergillus infection [Unknown]
  - Toxicity to various agents [Unknown]
  - Pyrexia [Unknown]
  - Productive cough [Unknown]
  - Diabetes mellitus [Unknown]
  - Renal cell carcinoma [Unknown]
  - Posterior reversible encephalopathy syndrome [Unknown]
